FAERS Safety Report 13639409 (Version 1)
Quarter: 2017Q2

REPORT INFORMATION
  Report Type: Spontaneous
  Country: US (occurrence: US)
  Receive Date: 20170609
  Receipt Date: 20170609
  Transmission Date: 20170830
  Serious: No
  Sender: FDA-Public Use
  Company Number: US-ROCHE-1407376

PATIENT
  Sex: Female

DRUGS (1)
  1. KLONOPIN [Suspect]
     Active Substance: CLONAZEPAM
     Indication: ANXIETY
     Dosage: USUALLY TAKES 3/4 OF TABLET
     Route: 065
     Dates: start: 2013

REACTIONS (3)
  - Sleep disorder [Unknown]
  - Palpitations [Unknown]
  - Drug effect decreased [Unknown]
